FAERS Safety Report 10429983 (Version 2)
Quarter: 2014Q4

REPORT INFORMATION
  Report Type: Spontaneous
  Country: US (occurrence: US)
  Receive Date: 20140904
  Receipt Date: 20141114
  Transmission Date: 20150528
  Serious: Yes (Hospitalization)
  Sender: FDA-Public Use
  Company Number: US-BAYER-2014-129244

PATIENT
  Age: 22 Year
  Sex: Female
  Weight: 48.98 kg

DRUGS (11)
  1. ZITHROMAX [Concomitant]
     Active Substance: AZITHROMYCIN DIHYDRATE
     Route: 048
  2. METHYLPREDNISOLONE. [Concomitant]
     Active Substance: METHYLPREDNISOLONE
     Dosage: 4 MG KIT
     Route: 048
  3. TOPAMAX [Concomitant]
     Active Substance: TOPIRAMATE
     Dosage: 25 MG, BID
     Route: 048
  4. AMITRIPTYLINE [Concomitant]
     Active Substance: AMITRIPTYLINE
     Dosage: 75 MG, BEDTIME
     Route: 048
  5. FLUOXETINE [Concomitant]
     Active Substance: FLUOXETINE\FLUOXETINE HYDROCHLORIDE
     Dosage: 10 MG, EVERY MORNING
     Route: 048
  6. MIRENA [Suspect]
     Active Substance: LEVONORGESTREL
     Indication: CONTRACEPTION
     Dosage: 20 MCG/24HR, CONT
     Route: 015
     Dates: start: 201207, end: 20130313
  7. FLUTICASONE [Concomitant]
     Active Substance: FLUTICASONE\FLUTICASONE PROPIONATE
     Dosage: 50 MCG, 2 SPRAYS TWICE DAILY
     Route: 045
  8. PREGABALIN. [Concomitant]
     Active Substance: PREGABALIN
     Dosage: 25 MG, BID
     Route: 048
  9. BENZOCAINE. [Concomitant]
     Active Substance: BENZOCAINE
     Indication: EAR PAIN
     Dosage: 4-5 DROPS IN EAR SEVERAL TIMES /DAY
     Route: 061
  10. BUSPIRONE [Concomitant]
     Active Substance: BUSPIRONE HYDROCHLORIDE
     Dosage: 15 MG, TID
     Route: 048
  11. XANAX [Concomitant]
     Active Substance: ALPRAZOLAM
     Dosage: 0.25 MG, QD
     Route: 048

REACTIONS (10)
  - Fibromyalgia [None]
  - Injury [None]
  - Depression [None]
  - Complication of device removal [None]
  - Abdominal pain lower [None]
  - Anxiety [None]
  - Pain [None]
  - Uterine perforation [None]
  - Emotional distress [None]
  - Device breakage [None]

NARRATIVE: CASE EVENT DATE: 20120731
